FAERS Safety Report 23342837 (Version 1)
Quarter: 2023Q4

REPORT INFORMATION
  Report Type: Spontaneous
  Country: US (occurrence: None)
  Receive Date: 20231226
  Receipt Date: 20231226
  Transmission Date: 20240109
  Serious: No
  Sender: FDA-Public Use
  Company Number: None

PATIENT
  Sex: Female

DRUGS (3)
  1. NUCALA [Suspect]
     Active Substance: MEPOLIZUMAB
     Indication: Asthma
     Dosage: OTHER FREQUENCY : EVERY 30 DAYS ;?
     Route: 058
     Dates: start: 202104
  2. RASUVO [Concomitant]
  3. KEVZARA [Concomitant]
     Active Substance: SARILUMAB

REACTIONS (1)
  - Drug ineffective [None]
